FAERS Safety Report 5059356-1 (Version None)
Quarter: 2006Q3

REPORT INFORMATION
  Report Type: 
  Country: None (occurrence: None)
  Receive Date: 20060718
  Receipt Date: 20060703
  Transmission Date: 20061208
  Serious: Yes (Other)
  Sender: FDA-Public Use
  Company Number: MX200604000069

PATIENT
  Age: 23 Year
  Sex: Male
  Weight: 65 kg

DRUGS (2)
  1. STRATTERA(ATOMOXETINE HYDROCDHLORIDE) CAPSULE [Suspect]
     Indication: ATTENTION DEFICIT/HYPERACTIVITY DISORDER
     Dosage: 80 MG, DAILY (1/D), ORAL
     Route: 048
     Dates: start: 20050901
  2. CYMBALTA [Concomitant]

REACTIONS (5)
  - BLOOD BILIRUBIN INCREASED [None]
  - BLOOD CREATINE PHOSPHOKINASE INCREASED [None]
  - JAUNDICE [None]
  - LIVER DISORDER [None]
  - TRANSAMINASES INCREASED [None]
